FAERS Safety Report 24309237 (Version 2)
Quarter: 2024Q4

REPORT INFORMATION
  Report Type: Spontaneous
  Country: CA (occurrence: CA)
  Receive Date: 20240911
  Receipt Date: 20241219
  Transmission Date: 20250115
  Serious: Yes (Death)
  Sender: HLS THERAPEUTICS
  Company Number: CA-HLS-202402297

PATIENT
  Age: 20 Year
  Sex: Male
  Weight: 57 kg

DRUGS (5)
  1. CLOZAPINE [Suspect]
     Active Substance: CLOZAPINE
     Indication: Schizophrenia
     Dosage: 350.0 MILLIGRAM 1 EVERY 1 DAYS?TABLETS DOSAGE FORM
     Route: 065
  2. CLOZAPINE [Suspect]
     Active Substance: CLOZAPINE
     Indication: Product used for unknown indication
     Dosage: 350.0 MILLIGRAM 1 EVERY 1 DAYS?TABLETS DOSAGE FORM
     Route: 065
  3. BENZTROPINE [Concomitant]
     Active Substance: BENZTROPINE
     Dosage: 3 EVERY 1 DAYS?AMOUNT: 2 MILLIGRAM
     Route: 065
  4. QUETIAPINE FUMARATE [Concomitant]
     Active Substance: QUETIAPINE FUMARATE
     Dosage: 2 EVERY 1 DAYS?AMOUNT: 50 MILLIGRAM
     Route: 065
  5. ZUCLOPENTHIXOL ACETATE [Concomitant]
     Active Substance: ZUCLOPENTHIXOL ACETATE
     Dosage: 1 EVERY 2 WEEKS?AMOUNT: 250 MILLIGRAM
     Route: 065

REACTIONS (1)
  - Sudden death [Fatal]
